FAERS Safety Report 5856531-0 (Version None)
Quarter: 2008Q3

REPORT INFORMATION
  Report Type: 
  Country: None (occurrence: None)
  Receive Date: 20080821
  Receipt Date: 20080806
  Transmission Date: 20090109
  Serious: Yes (Hospitalization)
  Sender: FDA-Public Use
  Company Number: 1000000512

PATIENT
  Age: 84 Year
  Sex: Female

DRUGS (5)
  1. ESCITALOPRAM OXALATE [Suspect]
     Indication: DEPRESSION
     Dosage: 10 MG, (10 MG, 1 IN 1 D), ORAL
     Route: 048
     Dates: end: 20080716
  2. TOPALGIC (150 MILLIGRAM, TABLETS) [Suspect]
     Indication: PAIN
     Dosage: 300 MG, (150MG, 2 IN 1 D), ORAL
     Route: 048
     Dates: start: 20080501, end: 20080716
  3. LYRICA [Suspect]
     Indication: PAIN
     Dosage: 300 MG, (150 MG, 2 IN 1 D), ORAL
     Route: 048
     Dates: start: 20080501, end: 20080716
  4. LYRICA [Suspect]
     Indication: PAIN
     Dosage: ORAL
     Route: 048
     Dates: start: 20080101
  5. TOPALGIC (TABLETS) [Suspect]
     Dosage: ORAL
     Route: 048
     Dates: start: 20080101

REACTIONS (4)
  - CONVULSION [None]
  - EPILEPSY [None]
  - LOSS OF CONSCIOUSNESS [None]
  - TONGUE BITING [None]
